FAERS Safety Report 4343178-0 (Version None)
Quarter: 2004Q2

REPORT INFORMATION
  Report Type: 
  Country: None (occurrence: None)
  Receive Date: 20040421
  Receipt Date: 20040413
  Transmission Date: 20050107
  Serious: Yes (Hospitalization, Other)
  Sender: FDA-Public Use
  Company Number: PHFR2004GB01779

PATIENT
  Age: 60 Year
  Sex: Male

DRUGS (3)
  1. DICLOFENAC SODIUM [Suspect]
     Indication: ARTHRALGIA
     Dosage: 50MG/DAY
     Route: 048
     Dates: start: 20040112, end: 20040310
  2. BENDROFLUAZIDE [Concomitant]
     Dosage: 2.5MG/DAY
     Route: 048
     Dates: start: 20040112
  3. LISINOPRIL [Concomitant]
     Indication: AORTIC VALVE INCOMPETENCE
     Dosage: 20MG/DAY
     Route: 048
     Dates: start: 20040112

REACTIONS (5)
  - CIRCULATORY COLLAPSE [None]
  - HYPOTENSION [None]
  - OEDEMA MOUTH [None]
  - RASH ERYTHEMATOUS [None]
  - SWOLLEN TONGUE [None]
